FAERS Safety Report 24064119 (Version 1)
Quarter: 2024Q3

REPORT INFORMATION
  Report Type: Spontaneous
  Country: KR (occurrence: KR)
  Receive Date: 20240709
  Receipt Date: 20240709
  Transmission Date: 20241016
  Serious: Yes (Other)
  Sender: ASTELLAS
  Company Number: KR-ROCHE-10000010988

PATIENT
  Age: 39 Year

DRUGS (2)
  1. ERLOTINIB [Suspect]
     Active Substance: ERLOTINIB
     Indication: Non-small cell lung cancer
     Dosage: UNK UNK, UNKNOWN FREQ.
     Route: 065
  2. SORAFENIB [Suspect]
     Active Substance: SORAFENIB
     Indication: Non-small cell lung cancer
     Dosage: UNK UNK, UNKNOWN FREQ.
     Route: 065

REACTIONS (4)
  - Deep vein thrombosis [Unknown]
  - Hypokalaemia [Unknown]
  - Dizziness [Unknown]
  - Neutropenia [Unknown]
